FAERS Safety Report 19058477 (Version 1)
Quarter: 2021Q1

REPORT INFORMATION
  Report Type: Spontaneous
  Country: US (occurrence: US)
  Receive Date: 20210325
  Receipt Date: 20210325
  Transmission Date: 20210420
  Serious: No
  Sender: FDA-Public Use
  Company Number: US-EMD SERONO-9224433

PATIENT
  Sex: Female

DRUGS (1)
  1. CLADRIBINE/CLADRIBINE [Suspect]
     Active Substance: CLADRIBINE
     Indication: MULTIPLE SCLEROSIS
     Dosage: YEAR ONE THERAPY

REACTIONS (1)
  - COVID-19 [Recovered/Resolved]
